FAERS Safety Report 6142398-2 (Version None)
Quarter: 2009Q2

REPORT INFORMATION
  Report Type: 
  Country: None (occurrence: None)
  Receive Date: 20090403
  Receipt Date: 20090325
  Transmission Date: 20091009
  Serious: Yes (Hospitalization)
  Sender: FDA-Public Use
  Company Number: CZ-BIOGENIDEC-2009BI005320

PATIENT
  Age: 28 Year
  Sex: Female

DRUGS (4)
  1. TYSABRI [Suspect]
     Indication: MULTIPLE SCLEROSIS
     Dates: start: 20070909
  2. CALTRATE PLUS [Concomitant]
     Route: 048
  3. VIGANTOL [Concomitant]
     Route: 048
  4. ASCORUTIN [Concomitant]
     Route: 048

REACTIONS (1)
  - CERVICAL DYSPLASIA [None]
